FAERS Safety Report 5468543-X (Version None)
Quarter: 2007Q3

REPORT INFORMATION
  Report Type: 
  Country: None (occurrence: None)
  Receive Date: 20070926
  Receipt Date: 20070921
  Transmission Date: 20080115
  Serious: Yes (Other)
  Sender: FDA-Public Use
  Company Number: AU-GENENTECH-248173

PATIENT
  Sex: Male

DRUGS (1)
  1. RAPTIVA [Suspect]
     Indication: PSORIASIS
     Dosage: 0.68 ML, 1/WEEK
     Route: 058
     Dates: start: 20070227

REACTIONS (2)
  - GASTROINTESTINAL HAEMORRHAGE [None]
  - PSORIASIS [None]
